FAERS Safety Report 7227551-9 (Version None)
Quarter: 2011Q1

REPORT INFORMATION
  Report Type: 
  Country: None (occurrence: None)
  Receive Date: 20110114
  Receipt Date: 20110111
  Transmission Date: 20110831
  Serious: Yes (Hospitalization, Other)
  Sender: FDA-Public Use
  Company Number: BR-ABBOTT-11P-020-0696638-00

PATIENT
  Sex: Female
  Weight: 80 kg

DRUGS (8)
  1. ARAVA [Concomitant]
     Indication: MUSCULOSKELETAL PAIN
     Route: 048
  2. LOSARTAN [Concomitant]
     Indication: HYPERTENSION
     Route: 048
  3. NOODIPINA [Concomitant]
     Indication: HYPERTENSION
     Route: 048
  4. HUMIRA [Suspect]
     Indication: RHEUMATOID ARTHRITIS
     Route: 030
     Dates: start: 20060101
  5. HYDROCHLOROTHIAZIDE [Concomitant]
     Indication: HYPERTENSION
     Route: 048
  6. ANCORON [Concomitant]
     Indication: ARRHYTHMIA
     Route: 048
  7. VYTORIN [Concomitant]
     Indication: BLOOD CHOLESTEROL
     Dosage: EZETIMIBE10MG/SIMVASTATIN20MG
     Route: 048
  8. CALCIUM [Concomitant]
     Indication: PRODUCT USED FOR UNKNOWN INDICATION
     Route: 048

REACTIONS (6)
  - CEREBROVASCULAR ACCIDENT [None]
  - ANXIETY [None]
  - DEMENTIA ALZHEIMER'S TYPE [None]
  - WEIGHT INCREASED [None]
  - NERVOUSNESS [None]
  - INCORRECT ROUTE OF DRUG ADMINISTRATION [None]
